FAERS Safety Report 4503008-0 (Version None)
Quarter: 2004Q4

REPORT INFORMATION
  Report Type: 
  Country: None (occurrence: None)
  Receive Date: 20041112
  Receipt Date: 20041026
  Transmission Date: 20050328
  Serious: Yes (Other)
  Sender: FDA-Public Use
  Company Number: PHBS2004US14399

PATIENT
  Age: 25 Year
  Sex: Female

DRUGS (3)
  1. VISUDYNE [Suspect]
     Indication: CHORIORETINAL DISORDER
     Dosage: 6 MG/M^2 ONCE IV
     Route: 042
  2. VISUDYNE [Suspect]
     Indication: CHOROID NEOPLASM
     Dosage: 6 MG/M^2 ONCE IV
     Route: 042
  3. VISUDYNE [Suspect]
     Indication: HAEMANGIOMA
     Dosage: 6 MG/M^2 ONCE IV
     Route: 042

REACTIONS (1)
  - CHOROIDAL DYSTROPHY [None]
